FAERS Safety Report 19002220 (Version 1)
Quarter: 2021Q1

REPORT INFORMATION
  Report Type: Spontaneous
  Country: US (occurrence: US)
  Receive Date: 20210312
  Receipt Date: 20210312
  Transmission Date: 20210420
  Serious: Yes (Other)
  Sender: FDA-Public Use
  Company Number: US-BION-009514

PATIENT
  Age: 80 Year
  Sex: Male
  Weight: 92 kg

DRUGS (16)
  1. MELATONIN [Concomitant]
     Active Substance: MELATONIN
     Dosage: AT BEDTIME
  2. COLECALCIFEROL [Concomitant]
     Active Substance: CHOLECALCIFEROL
     Dosage: 1000 UNITS DAILY
  3. CYANOCOBALAMIN. [Concomitant]
     Active Substance: CYANOCOBALAMIN
     Dosage: 1000 MCG DAILY
  4. PANTOPRAZOLE [Concomitant]
     Active Substance: PANTOPRAZOLE
  5. BUPROPION/BUPROPION HYDROCHLORIDE [Concomitant]
     Active Substance: BUPROPION HYDROCHLORIDE
     Dosage: SUSTAINED ACTION
  6. SENNA ALEXANDRINA [Concomitant]
     Active Substance: SENNA LEAF
     Indication: CONSTIPATION
  7. TAMSULOSIN/TAMSULOSIN HYDROCHLORIDE [Concomitant]
     Active Substance: TAMSULOSIN HYDROCHLORIDE
     Dosage: AT BEDTIME
  8. AMANTADINE HYDROCHLORIDE. [Suspect]
     Active Substance: AMANTADINE HYDROCHLORIDE
     Indication: PARKINSON^S DISEASE
     Dosage: 100 MG TWICE A DAY,
     Route: 048
  9. DESIPRAMINE [Concomitant]
     Active Substance: DESIPRAMINE
     Dosage: AT BEDTIME
  10. FINASTERIDE. [Concomitant]
     Active Substance: FINASTERIDE
  11. GABAPENTIN. [Concomitant]
     Active Substance: GABAPENTIN
     Dosage: IN THE MORNING 900 MG AT BEDTIME
  12. QUETIAPINE/QUETIAPINE FUMARATE [Concomitant]
     Active Substance: QUETIAPINE FUMARATE
     Indication: HALLUCINATION, VISUAL
  13. LOVASTATIN. [Concomitant]
     Active Substance: LOVASTATIN
     Dosage: AT BEDTIME
  14. APIXABAN [Concomitant]
     Active Substance: APIXABAN
  15. LISINOPRIL. [Concomitant]
     Active Substance: LISINOPRIL
  16. MACROGOL [Concomitant]
     Active Substance: POLYETHYLENE GLYCOLS
     Indication: CONSTIPATION
     Dosage: 17 GRAMS?EVERY 6 HOURS

REACTIONS (2)
  - Myoclonus [Recovered/Resolved]
  - Hallucination, visual [Unknown]
